FAERS Safety Report 21702861 (Version 3)
Quarter: 2023Q1

REPORT INFORMATION
  Report Type: Spontaneous
  Country: US (occurrence: US)
  Receive Date: 20221209
  Receipt Date: 20230208
  Transmission Date: 20230417
  Serious: No
  Sender: FDA-Public Use
  Company Number: US-SANOFI-01393950

PATIENT
  Age: 46 Year
  Sex: Female
  Weight: 73.923 kg

DRUGS (6)
  1. DUPIXENT [Suspect]
     Active Substance: DUPILUMAB
     Indication: Nasal polyps
     Dosage: 600 MG, 1X
  2. DUPIXENT [Suspect]
     Active Substance: DUPILUMAB
     Indication: Asthma
     Dosage: 300 MG, QOW
  3. WIXELA INHUB [Concomitant]
     Active Substance: FLUTICASONE PROPIONATE\SALMETEROL XINAFOATE
  4. ALBUTEROL [Concomitant]
     Active Substance: ALBUTEROL
  5. METFORMIN [Concomitant]
     Active Substance: METFORMIN HYDROCHLORIDE
  6. NEURONTIN [Concomitant]
     Active Substance: GABAPENTIN

REACTIONS (8)
  - Oral discomfort [Not Recovered/Not Resolved]
  - Dysphagia [Not Recovered/Not Resolved]
  - Trichorrhexis [Not Recovered/Not Resolved]
  - Cough [Not Recovered/Not Resolved]
  - Alopecia [Not Recovered/Not Resolved]
  - Antinuclear antibody positive [Unknown]
  - Arthralgia [Not Recovered/Not Resolved]
  - Serum sickness [Not Recovered/Not Resolved]
